FAERS Safety Report 4869270-X (Version None)
Quarter: 2005Q4

REPORT INFORMATION
  Report Type: 
  Country: None (occurrence: None)
  Receive Date: 20051230
  Receipt Date: 20051221
  Transmission Date: 20060501
  Serious: Yes (Hospitalization, Other)
  Sender: FDA-Public Use
  Company Number: US-JNJFOC-20051205276

PATIENT
  Sex: Female

DRUGS (1)
  1. DURAGESIC-100 [Suspect]
     Route: 062

REACTIONS (7)
  - AMNESIA [None]
  - DYSARTHRIA [None]
  - EPILEPSY [None]
  - EYE MOVEMENT DISORDER [None]
  - HYPOAESTHESIA [None]
  - KIDNEY INFECTION [None]
  - SPINAL DISORDER [None]
